FAERS Safety Report 4785052-1 (Version None)
Quarter: 2005Q3

REPORT INFORMATION
  Report Type: 
  Country: None (occurrence: None)
  Receive Date: 20050928
  Receipt Date: 20050907
  Transmission Date: 20060218
  Serious: Yes (Hospitalization, Disabling)
  Sender: FDA-Public Use
  Company Number: 387326

PATIENT
  Age: 16 Year
  Sex: Male
  Weight: 61.2 kg

DRUGS (8)
  1. ACCUTANE [Suspect]
     Indication: ACNE CYSTIC
     Dosage: 40 MG 1 PER 2 DAY ORAL
     Route: 048
     Dates: start: 20010828, end: 20011201
  2. AMOXICILLIN [Concomitant]
  3. PREDNISONE [Concomitant]
  4. ADVIL [Concomitant]
  5. ASACOL [Concomitant]
  6. BACTRIM DS [Concomitant]
  7. CLARITIN [Concomitant]
  8. ALEVE [Concomitant]

REACTIONS (41)
  - ACOUSTIC NEUROMA [None]
  - ANXIETY [None]
  - CANDIDIASIS [None]
  - CHEST DISCOMFORT [None]
  - CHEST PAIN [None]
  - COLITIS [None]
  - COLITIS ULCERATIVE [None]
  - COUGH [None]
  - CROHN'S DISEASE [None]
  - DEPRESSION [None]
  - DERMATITIS CONTACT [None]
  - DIARRHOEA [None]
  - DRUG INEFFECTIVE [None]
  - DYSPHAGIA [None]
  - DYSPNOEA EXERTIONAL [None]
  - FREQUENT BOWEL MOVEMENTS [None]
  - GASTROINTESTINAL DISORDER [None]
  - HAEMATOCHEZIA [None]
  - HEADACHE [None]
  - HEPATIC ENZYME INCREASED [None]
  - HERNIA [None]
  - HYPERSENSITIVITY [None]
  - INFLAMMATORY BOWEL DISEASE [None]
  - INTESTINAL HAEMORRHAGE [None]
  - JOINT SWELLING [None]
  - LIP DRY [None]
  - LOBAR PNEUMONIA [None]
  - MENINGIOMA [None]
  - MIGRAINE [None]
  - MULTI-ORGAN DISORDER [None]
  - NEUROMA [None]
  - ORAL INTAKE REDUCED [None]
  - POST PROCEDURAL NAUSEA [None]
  - POST PROCEDURAL VOMITING [None]
  - POUCHITIS [None]
  - PYREXIA [None]
  - RECTAL HAEMORRHAGE [None]
  - SCAR [None]
  - STRESS [None]
  - TREATMENT NONCOMPLIANCE [None]
  - WEIGHT INCREASED [None]
